FAERS Safety Report 17571882 (Version 1)
Quarter: 2020Q1

REPORT INFORMATION
  Report Type: Spontaneous
  Country: US (occurrence: US)
  Receive Date: 20200320
  Receipt Date: 20200320
  Transmission Date: 20200409
  Serious: No
  Sender: FDA-Public Use
  Company Number: None

PATIENT
  Age: 75 Year
  Sex: Female
  Weight: 76.5 kg

DRUGS (1)
  1. ZOLPIDEM TARTRATE 5MG [Suspect]
     Active Substance: ZOLPIDEM TARTRATE
     Indication: INSOMNIA
     Dosage: ?          QUANTITY:1 TABLET(S);?
     Route: 048
     Dates: start: 20191212, end: 20200302

REACTIONS (7)
  - Fatigue [None]
  - Product substitution issue [None]
  - Drug ineffective [None]
  - Product quality issue [None]
  - Insomnia [None]
  - Product counterfeit [None]
  - Product quality control issue [None]

NARRATIVE: CASE EVENT DATE: 20191212
